FAERS Safety Report 6163212-5 (Version None)
Quarter: 2009Q2

REPORT INFORMATION
  Report Type: 
  Country: None (occurrence: None)
  Receive Date: 20090420
  Receipt Date: 20090420
  Transmission Date: 20091009
  Serious: No
  Sender: FDA-Public Use
  Company Number: None

PATIENT
  Age: 51 Year
  Sex: Male
  Weight: 98 kg

DRUGS (17)
  1. VARENICLINE [Suspect]
     Indication: SMOKING CESSATION THERAPY
     Dosage: 1 MG BID PO
     Route: 048
     Dates: start: 20070911, end: 20071227
  2. ALLOPURINOL [Concomitant]
  3. AMLODIPINE [Concomitant]
  4. ASPIRIN [Concomitant]
  5. BRIMONIDINE TARTRATE [Concomitant]
  6. BUPROPION HCL [Concomitant]
  7. DOCUSATE SODIUM [Concomitant]
  8. DORZOLAMIDE HCL AND TIMOLOL MALEATE [Concomitant]
  9. FERROUS SULFATE TAB [Concomitant]
  10. GEMFIBROZIL [Concomitant]
  11. GLIPIZIDE [Concomitant]
  12. LISINOPRIL [Concomitant]
  13. OLANZAPINE [Concomitant]
  14. OMEPRAZOLE [Concomitant]
  15. RANITIDINE [Concomitant]
  16. SIMVASTATIN [Concomitant]
  17. TRAVOPROST [Concomitant]

REACTIONS (6)
  - ABNORMAL DREAMS [None]
  - AGITATION [None]
  - INSOMNIA [None]
  - IRRITABILITY [None]
  - MOOD SWINGS [None]
  - NIGHTMARE [None]
